FAERS Safety Report 24163380 (Version 1)
Quarter: 2024Q3

REPORT INFORMATION
  Report Type: Spontaneous
  Country: CN (occurrence: CN)
  Receive Date: 20240801
  Receipt Date: 20240801
  Transmission Date: 20241016
  Serious: Yes (Life-Threatening)
  Sender: PURDUE
  Company Number: CN-NAPPMUNDI-GBR-2024-0118513

PATIENT
  Age: 69 Year
  Sex: Male

DRUGS (1)
  1. MORPHINE SULFATE [Suspect]
     Active Substance: MORPHINE SULFATE
     Indication: Hepatic cancer
     Dosage: 30 MILLIGRAM, BID
     Route: 048
     Dates: start: 20240718, end: 20240719

REACTIONS (4)
  - Micturition disorder [Recovered/Resolved]
  - Asthenia [Unknown]
  - Somnolence [Unknown]
  - Cold sweat [Unknown]

NARRATIVE: CASE EVENT DATE: 20240719
